FAERS Safety Report 9624789 (Version 2)
Quarter: 2013Q4

REPORT INFORMATION
  Report Type: Report from Study
  Country: CZ (occurrence: CZ)
  Receive Date: 20131015
  Receipt Date: 20131015
  Transmission Date: 20140711
  Serious: Yes (Death, Hospitalization)
  Sender: FDA-Public Use
  Company Number: CZ-B.I. PHARMACEUTICALS,INC./RIDGEFIELD-2013-AP-00261AP

PATIENT
  Age: 48 Year
  Sex: Male
  Weight: 47 kg

DRUGS (4)
  1. BIBW 2992 [Suspect]
     Indication: SQUAMOUS CELL CARCINOMA OF HEAD AND NECK
     Dosage: 40 NR
     Route: 048
     Dates: start: 20130211, end: 20130507
  2. INDOOMETACINE [Concomitant]
     Indication: PAIN
     Dosage: 100 MCG
     Route: 054
     Dates: start: 20130211
  3. AUOPYRIN [Concomitant]
     Indication: ANTICOAGULANT THERAPY
     Dosage: 50 MCG
     Route: 048
     Dates: start: 201212
  4. TROUSTEC [Concomitant]
     Indication: PAIN
     Route: 062
     Dates: start: 20130211

REACTIONS (4)
  - Neoplasm progression [Fatal]
  - Vomiting [Recovered/Resolved]
  - Diarrhoea [Recovered/Resolved]
  - Nausea [Recovered/Resolved]
